FAERS Safety Report 23797576 (Version 1)
Quarter: 2024Q2

REPORT INFORMATION
  Report Type: Spontaneous
  Country: US (occurrence: None)
  Receive Date: 20240430
  Receipt Date: 20240430
  Transmission Date: 20240716
  Serious: No
  Sender: FDA-Public Use
  Company Number: 2024A099094

PATIENT
  Sex: Female

DRUGS (1)
  1. TAGRISSO [Suspect]
     Active Substance: OSIMERTINIB
     Route: 048

REACTIONS (8)
  - Blue toe syndrome [Unknown]
  - Skin depigmentation [Unknown]
  - Skin abrasion [Unknown]
  - Onychoclasis [Unknown]
  - Nail disorder [Unknown]
  - Nail discolouration [Unknown]
  - Dry skin [Unknown]
  - Onychomycosis [Unknown]
